FAERS Safety Report 9563411 (Version 1)
Quarter: 2013Q3

REPORT INFORMATION
  Report Type: Spontaneous
  Country: GB (occurrence: None)
  Receive Date: 20130926
  Receipt Date: 20130926
  Transmission Date: 20140515
  Serious: Yes (Disabling, Other)
  Sender: FDA-Public Use
  Company Number: AUR-APL-2013-07880

PATIENT
  Age: 68 Year
  Sex: Male
  Weight: 70.6 kg

DRUGS (7)
  1. BISOPROLOL (BISOPROLOL) [Suspect]
     Indication: HYPERTENSION
     Route: 048
     Dates: start: 20130123, end: 20130313
  2. BISOPROLOL (BISOPROLOL) [Suspect]
     Indication: ANGINA PECTORIS
     Route: 048
     Dates: start: 20130123, end: 20130313
  3. AMLODIPINE (AMLODIPINE) [Concomitant]
  4. FEXOFENADINE [Concomitant]
  5. LANSOPRAZOLE (LANSOPRAZOLE) [Concomitant]
  6. LOSARTAN LOSARTAN) [Concomitant]
  7. SIMVASTATIN (SIMVASTATIN) [Concomitant]

REACTIONS (1)
  - Angina pectoris [None]
